FAERS Safety Report 4488752-6 (Version None)
Quarter: 2004Q4

REPORT INFORMATION
  Report Type: 
  Country: None (occurrence: None)
  Receive Date: 20041025
  Receipt Date: 20041012
  Transmission Date: 20050328
  Serious: Yes (Other)
  Sender: FDA-Public Use
  Company Number: 2004078002

PATIENT
  Age: 80 Year
  Sex: Female
  Weight: 66 kg

DRUGS (5)
  1. ATORVASTATIN (ATORVASTATIN) [Suspect]
     Indication: BLOOD CHOLESTEROL INCREASED
     Dosage: 10 MG (10 MG, 1 IN 1 D), ORAL
     Route: 048
     Dates: start: 20040201, end: 20040401
  2. LISINOPRIL [Concomitant]
  3. LEVOTHYROXINE SODIUM [Concomitant]
  4. METFORMIN HCL [Concomitant]
  5. LANSOPRAZOLE [Concomitant]

REACTIONS (3)
  - BLINDNESS TRANSIENT [None]
  - MOVEMENT DISORDER [None]
  - SYNCOPE [None]
